FAERS Safety Report 9886752 (Version 3)
Quarter: 2014Q1

REPORT INFORMATION
  Report Type: Spontaneous
  Country: US (occurrence: US)
  Receive Date: 20140210
  Receipt Date: 20140311
  Transmission Date: 20141002
  Serious: No
  Sender: FDA-Public Use
  Company Number: US-BAXTER-2014BAX005850

PATIENT
  Sex: Male
  Weight: 65.91 kg

DRUGS (8)
  1. DIANEAL LOW CALCIUM [Suspect]
     Indication: RENAL FAILURE CHRONIC
     Route: 033
     Dates: start: 201109
  2. DIANEAL LOW CALCIUM [Suspect]
     Route: 033
     Dates: start: 201312
  3. DIANEAL LOW CALCIUM [Suspect]
     Route: 033
     Dates: start: 2014
  4. DIANEAL LOW CALCIUM [Suspect]
     Route: 033
     Dates: start: 2014
  5. DIANEAL LOW CALCIUM [Suspect]
     Indication: RENAL FAILURE CHRONIC
     Route: 033
     Dates: start: 201109
  6. DIANEAL LOW CALCIUM [Suspect]
     Route: 033
     Dates: start: 201312
  7. DIANEAL LOW CALCIUM [Suspect]
     Route: 033
     Dates: start: 2014
  8. DIANEAL LOW CALCIUM [Suspect]
     Route: 033
     Dates: start: 2014

REACTIONS (6)
  - Peritoneal dialysis complication [Recovered/Resolved]
  - Insomnia [Not Recovered/Not Resolved]
  - Hiccups [Not Recovered/Not Resolved]
  - Weight decreased [Not Recovered/Not Resolved]
  - Abdominal distension [Recovered/Resolved]
  - Malaise [Unknown]
